FAERS Safety Report 23787384 (Version 1)
Quarter: 2024Q2

REPORT INFORMATION
  Report Type: Spontaneous
  Country: FR (occurrence: FR)
  Receive Date: 20240426
  Receipt Date: 20240426
  Transmission Date: 20240716
  Serious: Yes (Other)
  Sender: FDA-Public Use
  Company Number: FR-GLAXOSMITHKLINE-FR2024GSK032042

PATIENT
  Sex: Female

DRUGS (3)
  1. CARBOPLATIN [Suspect]
     Active Substance: CARBOPLATIN
     Indication: Cervix neoplasm
     Dosage: UNK,  Q3W
     Route: 042
     Dates: start: 20231218, end: 20240306
  2. PACLITAXEL [Suspect]
     Active Substance: PACLITAXEL
     Indication: Cervix neoplasm
     Dosage: UNK, Q3W
     Route: 042
     Dates: start: 20231218, end: 20240306
  3. DOSTARLIMAB [Suspect]
     Active Substance: DOSTARLIMAB
     Indication: Cervix neoplasm
     Dosage: 500 MILLIGRAM, EVERY 3 WEEKS
     Route: 042
     Dates: start: 20231218, end: 20240306

REACTIONS (1)
  - Malignant neoplasm progression [Unknown]
